FAERS Safety Report 7381176-3 (Version None)
Quarter: 2011Q1

REPORT INFORMATION
  Report Type: 
  Country: None (occurrence: None)
  Receive Date: 20110329
  Receipt Date: 20101227
  Transmission Date: 20110831
  Serious: Yes (Hospitalization)
  Sender: FDA-Public Use
  Company Number: DE-ABBOTT-10P-062-0693525-00

PATIENT
  Sex: Female
  Weight: 83 kg

DRUGS (6)
  1. LEVOTHYROXINE SODIUM [Concomitant]
     Indication: PRODUCT USED FOR UNKNOWN INDICATION
     Dosage: 100 MG DAILY
  2. HUMIRA [Suspect]
     Indication: PSORIATIC ARTHROPATHY
     Route: 058
     Dates: start: 20080118, end: 20110115
  3. METHOTREXATE [Concomitant]
     Indication: PRODUCT USED FOR UNKNOWN INDICATION
  4. METEX [Concomitant]
  5. HUMIRA [Suspect]
  6. BLOOD PRESSURE DRUG [Concomitant]
     Indication: PRODUCT USED FOR UNKNOWN INDICATION

REACTIONS (1)
  - BENIGN BREAST NEOPLASM [None]
